FAERS Safety Report 9514868 (Version 1)
Quarter: 2013Q3

REPORT INFORMATION
  Report Type: Report from Study
  Country: US (occurrence: US)
  Receive Date: 20130911
  Receipt Date: 20130911
  Transmission Date: 20140515
  Serious: Yes (Other)
  Sender: FDA-Public Use
  Company Number: US-BAYER-2013-108385

PATIENT
  Age: 47 Year
  Sex: Female

DRUGS (7)
  1. BETASERON [Suspect]
     Indication: MULTIPLE SCLEROSIS
     Dosage: 8 MIU, QOD
     Route: 058
     Dates: start: 20130403
  2. ALEVE TABLET [Concomitant]
  3. IMITREX [Concomitant]
  4. WELLBUTRIN [Concomitant]
  5. PREVACID [Concomitant]
  6. ALBUTEROL [Concomitant]
     Dosage: UNK UNK, PRN
  7. VITAMIN D [Concomitant]

REACTIONS (5)
  - Choking [Not Recovered/Not Resolved]
  - Abdominal distension [Not Recovered/Not Resolved]
  - Swelling face [Not Recovered/Not Resolved]
  - Oedema peripheral [Not Recovered/Not Resolved]
  - Dyspnoea [Not Recovered/Not Resolved]
